APPROVED DRUG PRODUCT: SODIUM SULFACETAMIDE
Active Ingredient: SULFACETAMIDE SODIUM
Strength: 30%
Dosage Form/Route: SOLUTION/DROPS;OPHTHALMIC
Application: A083021 | Product #003
Applicant: EPIC PHARMA LLC
Approved: Approved Prior to Jan 1, 1982 | RLD: No | RS: No | Type: DISCN